FAERS Safety Report 4999327-4 (Version None)
Quarter: 2006Q2

REPORT INFORMATION
  Report Type: 
  Country: None (occurrence: None)
  Receive Date: 20060509
  Receipt Date: 20060509
  Transmission Date: 20061013
  Serious: Yes (Other)
  Sender: FDA-Public Use
  Company Number: None

PATIENT
  Age: 30 Year
  Sex: Female
  Weight: 49.8957 kg

DRUGS (3)
  1. BACTRIM DS [Suspect]
     Indication: HIV INFECTION
     Dosage: 160 MG EVERY 8 HOURS IV BOLUS
     Route: 040
     Dates: start: 20060424, end: 20060427
  2. BACTRIM DS [Suspect]
     Indication: PANCREATITIS
     Dosage: 160 MG EVERY 8 HOURS IV BOLUS
     Route: 040
     Dates: start: 20060424, end: 20060427
  3. BACTRIM DS [Suspect]
     Indication: PROPHYLAXIS
     Dosage: 160 MG EVERY 8 HOURS IV BOLUS
     Route: 040
     Dates: start: 20060424, end: 20060427

REACTIONS (1)
  - STEVENS-JOHNSON SYNDROME [None]
